FAERS Safety Report 24428616 (Version 1)
Quarter: 2024Q4

REPORT INFORMATION
  Report Type: Spontaneous
  Country: JP (occurrence: JP)
  Receive Date: 20241011
  Receipt Date: 20241011
  Transmission Date: 20250114
  Serious: Yes (Other)
  Sender: BAYER
  Company Number: JP-BAYER-2024A144558

PATIENT
  Sex: Male

DRUGS (1)
  1. XOFIGO [Suspect]
     Active Substance: RADIUM RA-223 DICHLORIDE
     Indication: Hormone-refractory prostate cancer
     Dosage: UNK UNK, ONCE

REACTIONS (2)
  - Malaise [Recovered/Resolved]
  - Prostatic specific antigen increased [Not Recovered/Not Resolved]
